APPROVED DRUG PRODUCT: RAPAMUNE
Active Ingredient: SIROLIMUS
Strength: 1MG
Dosage Form/Route: TABLET;ORAL
Application: N021110 | Product #001 | TE Code: AB
Applicant: PF PRISM CV
Approved: Aug 25, 2000 | RLD: Yes | RS: No | Type: RX